FAERS Safety Report 21672663 (Version 3)
Quarter: 2022Q4

REPORT INFORMATION
  Report Type: Report from Study
  Country: US (occurrence: US)
  Receive Date: 20221202
  Receipt Date: 20221230
  Transmission Date: 20230113
  Serious: Yes (Hospitalization)
  Sender: FDA-Public Use
  Company Number: US-ABBVIE-4220223

PATIENT
  Sex: Male

DRUGS (1)
  1. VENCLEXTA [Suspect]
     Active Substance: VENETOCLAX
     Indication: Acute lymphocytic leukaemia
     Dosage: FORM STRENGTH: 100 MILLIGRAM , WITH FOOD AND FULL GLASS OF WATER
     Route: 048
     Dates: end: 20221207

REACTIONS (4)
  - Influenza [Unknown]
  - Drug ineffective [Unknown]
  - Swelling [Unknown]
  - Mouth ulceration [Unknown]

NARRATIVE: CASE EVENT DATE: 20220101
